FAERS Safety Report 18436438 (Version 7)
Quarter: 2021Q2

REPORT INFORMATION
  Report Type: Report from Study
  Country: US (occurrence: US)
  Receive Date: 20201028
  Receipt Date: 20210615
  Transmission Date: 20210717
  Serious: No
  Sender: FDA-Public Use
  Company Number: NVSC2020US284882

PATIENT
  Sex: Male

DRUGS (2)
  1. COSENTYX [Suspect]
     Active Substance: SECUKINUMAB
     Indication: PSORIASIS
     Dosage: 300 MG, Q4W
     Route: 058
  2. COSENTYX [Suspect]
     Active Substance: SECUKINUMAB
     Dosage: 300 MG/KG, QMO
     Route: 058

REACTIONS (6)
  - Psoriasis [Recovering/Resolving]
  - Pain of skin [Unknown]
  - Skin lesion [Unknown]
  - Product dose omission issue [Unknown]
  - Pruritus [Unknown]
  - Skin irritation [Unknown]
